FAERS Safety Report 19646918 (Version 1)
Quarter: 2021Q3

REPORT INFORMATION
  Report Type: Spontaneous
  Country: IN (occurrence: IN)
  Receive Date: 20210802
  Receipt Date: 20210802
  Transmission Date: 20211014
  Serious: Yes (Death)
  Sender: FDA-Public Use
  Company Number: IN-PFIZER INC-202100924933

PATIENT
  Age: 63 Year
  Sex: Male

DRUGS (2)
  1. LORLATINIB [Suspect]
     Active Substance: LORLATINIB
     Indication: LUNG CANCER METASTATIC
     Dosage: 100 MG, 1X/DAY (OD)
     Route: 048
     Dates: start: 20210706
  2. XGEVA [Concomitant]
     Active Substance: DENOSUMAB
     Dosage: 480 MG, WEEKLY (120 MG, 4 WEEKLY)

REACTIONS (3)
  - Death [Fatal]
  - Abnormal behaviour [Unknown]
  - Ataxia [Unknown]
